FAERS Safety Report 25023508 (Version 1)
Quarter: 2025Q1

REPORT INFORMATION
  Report Type: Spontaneous
  Country: US (occurrence: None)
  Receive Date: 20250227
  Receipt Date: 20250227
  Transmission Date: 20250408
  Serious: Yes (Hospitalization, Disabling)
  Sender: FDA-CTU
  Company Number: None

PATIENT
  Age: 82 Year
  Sex: Male
  Weight: 89.9 kg

DRUGS (1)
  1. WARFARIN [Suspect]
     Active Substance: WARFARIN
     Indication: Arteriovenous graft thrombosis
     Dosage: FREQUENCY : DAILY;?
     Route: 048
     Dates: start: 20230803, end: 20250115

REACTIONS (5)
  - International normalised ratio increased [None]
  - Ischaemic cerebral infarction [None]
  - Basal ganglia haemorrhage [None]
  - Vascular malformation [None]
  - Therapy interrupted [None]

NARRATIVE: CASE EVENT DATE: 20250115
